FAERS Safety Report 8144168-2 (Version None)
Quarter: 2012Q1

REPORT INFORMATION
  Report Type: 
  Country: None (occurrence: None)
  Receive Date: 20120217
  Receipt Date: 20120214
  Transmission Date: 20120608
  Serious: Yes (Other)
  Sender: FDA-Public Use
  Company Number: US-PFIZER INC-2012040578

PATIENT

DRUGS (1)
  1. EFFEXOR [Suspect]
     Dosage: 37.5 MG, HALF TABLET PER DAY

REACTIONS (1)
  - HYPERTENSION [None]
